FAERS Safety Report 5370678-7 (Version None)
Quarter: 2007Q2

REPORT INFORMATION
  Report Type: 
  Country: None (occurrence: None)
  Receive Date: 20070618
  Receipt Date: 20060817
  Transmission Date: 20071010
  Serious: Yes (Other)
  Sender: FDA-Public Use
  Company Number: PHEH2006US10593

PATIENT
  Age: 71 Year
  Sex: Female

DRUGS (6)
  1. GLEEVEC [Suspect]
     Indication: GASTROINTESTINAL STROMAL TUMOUR
     Dosage: 400 MG, QD, ORAL
     Route: 048
     Dates: start: 20051025, end: 20060301
  2. METOPROLOL TARTRATE [Concomitant]
  3. DIOVAN [Concomitant]
  4. LASIX [Concomitant]
  5. COUMADIN [Concomitant]
  6. SYNTHROID [Concomitant]

REACTIONS (6)
  - CARDIAC ABLATION [None]
  - CARDIAC FAILURE [None]
  - CARDIAC HYPERTROPHY [None]
  - CARDIAC PACEMAKER INSERTION [None]
  - ECHOCARDIOGRAM ABNORMAL [None]
  - EJECTION FRACTION DECREASED [None]
